FAERS Safety Report 7387601-6 (Version None)
Quarter: 2011Q1

REPORT INFORMATION
  Report Type: 
  Country: None (occurrence: None)
  Receive Date: 20110331
  Receipt Date: 20080616
  Transmission Date: 20110831
  Serious: Yes (Death, Hospitalization, Other)
  Sender: FDA-Public Use
  Company Number: US-BAYER-200825791NA

PATIENT
  Sex: Male
  Weight: 112.47 kg

DRUGS (40)
  1. HEPARIN SODIUM [Concomitant]
     Dosage: 40,000 THROUGHOUT PROCEDURE
  2. HEPARIN SODIUM [Concomitant]
     Dosage: 200,000UNITS/30,000 UNITS PRIME
     Dates: start: 20060602, end: 20060602
  3. BIVALIRUDIN [Concomitant]
     Indication: CATHETERISATION CARDIAC
     Dosage: 16.5
     Route: 042
     Dates: start: 20060527, end: 20060527
  4. FENTANYL [Concomitant]
     Indication: SEDATION
     Dosage: 50MCG
     Dates: start: 20060527, end: 20060527
  5. FORANE [Concomitant]
     Dosage: UNK
     Route: 042
     Dates: start: 20060602, end: 20060602
  6. MANNITOL [Concomitant]
     Dosage: 25 G, PRIME
     Dates: start: 20060602, end: 20060602
  7. RED BLOOD CELLS [Concomitant]
     Dosage: 3 U, UNK
     Route: 042
     Dates: start: 20060603
  8. PRAVACHOL [Concomitant]
     Dosage: 40 MG, QD
     Route: 048
     Dates: start: 20050729
  9. NITROGLYCERIN [Concomitant]
     Indication: EMERGENCY CARE
     Dosage: UNK
     Route: 042
     Dates: start: 20060526
  10. NITROGLYCERIN [Concomitant]
     Dosage: 5 DOSES
     Route: 060
     Dates: start: 20060526
  11. PAVULON [Concomitant]
     Dosage: 15MG
     Route: 042
     Dates: start: 20060602
  12. LACTATED RINGER'S [Concomitant]
     Dosage: 3 L, UNK
     Dates: start: 20060602
  13. LOTREL [Concomitant]
     Dosage: 10/20MG DAILY
     Route: 048
  14. METOPROLOL SUCCINATE [Concomitant]
     Dosage: 50 MG, BID
     Route: 048
  15. NITROGLYCERIN [Concomitant]
     Dosage: 2-10 MCG/MINUTE
     Route: 042
     Dates: start: 20060602
  16. MEPERIDINE [Concomitant]
     Indication: ANXIETY
     Dosage: 25 MG, UNK
     Dates: start: 20060527, end: 20060527
  17. VERSED [Concomitant]
     Dosage: 3 MG
     Route: 042
     Dates: start: 20060602
  18. ACETYLSALICYLIC ACID SRT [Concomitant]
     Dosage: 81 MG, QD
  19. VANCOMYCIN [Concomitant]
     Dosage: 1300 MG, Q24H
     Route: 042
     Dates: start: 20060603
  20. PROTAMINE SULFATE [Concomitant]
     Dosage: 50 MG, UNK
     Route: 042
     Dates: start: 20060602, end: 20060602
  21. SODIUM BICARBONATE [Concomitant]
     Dosage: PRIME
     Dates: start: 20060602, end: 20060602
  22. PHENYLEPHRINE HCL [Concomitant]
     Dosage: 40 MCG PRIME
     Dates: start: 20060602, end: 20060602
  23. TRASYLOL [Suspect]
  24. GLIPIZIDE [Concomitant]
     Dosage: 5 MG, QD
  25. HEPARIN SODIUM [Concomitant]
     Dosage: 5000 U, ONCE
     Route: 042
     Dates: start: 20060526, end: 20060526
  26. MORPHINE [Concomitant]
     Dosage: 2 DOSES
     Dates: start: 20060526
  27. OMNIPAQUE 140 [Concomitant]
     Dosage: 350 ML, UNK
     Dates: start: 20060527, end: 20060527
  28. LISINOPRIL [Concomitant]
     Dosage: 10 MG, QD
     Dates: start: 20060527
  29. TRASYLOL [Suspect]
     Indication: CORONARY ARTERY BYPASS
     Dosage: 25 CC/HR
     Dates: start: 20060602, end: 20060602
  30. TRASYLOL [Suspect]
     Dosage: 1 ML TEST DOSE
     Dates: start: 20060602, end: 20060602
  31. FUROSEMIDE [Concomitant]
     Dosage: 20 MG, UNK
     Route: 042
     Dates: start: 20060527, end: 20060527
  32. FENTANYL [Concomitant]
     Dosage: 5-20 ML
     Route: 042
     Dates: start: 20060602
  33. VERSED [Concomitant]
     Indication: SEDATION
     Dosage: 1 MG
     Route: 042
     Dates: start: 20060527, end: 20060527
  34. VANCOMYCIN [Concomitant]
     Dosage: UNK
     Route: 042
     Dates: start: 20060602
  35. DOPAMINE HCL [Concomitant]
     Dosage: 5-20MCG/KG/MIN
     Route: 042
     Dates: start: 20060602
  36. CALCIUM CHLORID [CALCIUM CHLORIDE DIHYDRATE] [Concomitant]
     Dosage: 500 MG, UNK
     Route: 042
     Dates: start: 20060602
  37. TRASYLOL [Suspect]
     Dosage: 100 ML LOADING DOSE
     Dates: start: 20060602, end: 20060602
  38. LEVAQUIN [Concomitant]
     Indication: URINARY TRACT INFECTION
  39. HEPARIN SODIUM [Concomitant]
     Dosage: 1000-1600 UNITS/HOUR
     Route: 042
     Dates: start: 20060526, end: 20060612
  40. METOPROLOL [Concomitant]
     Dosage: 5 MG, UNK
     Route: 042
     Dates: start: 20060526

REACTIONS (4)
  - COAGULOPATHY [None]
  - EMOTIONAL DISTRESS [None]
  - INJURY [None]
  - RENAL FAILURE [None]
